FAERS Safety Report 9462748 (Version 1)
Quarter: 2013Q3

REPORT INFORMATION
  Report Type: Spontaneous
  Country: GB (occurrence: None)
  Receive Date: 20130814
  Receipt Date: 20130814
  Transmission Date: 20140515
  Serious: Yes (Other)
  Sender: FDA-Public Use
  Company Number: AUR-APL-2013-06601

PATIENT
  Age: 65 Year
  Sex: Female
  Weight: 73.02 kg

DRUGS (2)
  1. SIMVASTATIN (SIMVASTATIN) [Suspect]
     Indication: BLOOD CHOLESTEROL INCREASED
     Route: 048
     Dates: start: 201009, end: 20130611
  2. AMLODIPINE (AMLODIPINE) [Concomitant]

REACTIONS (4)
  - Myalgia [None]
  - Arthralgia [None]
  - Fatigue [None]
  - Depressed mood [None]
